FAERS Safety Report 18820239 (Version 1)
Quarter: 2021Q1

REPORT INFORMATION
  Report Type: Spontaneous
  Country: US (occurrence: US)
  Receive Date: 20210201
  Receipt Date: 20210201
  Transmission Date: 20210419
  Serious: Yes (Hospitalization)
  Sender: FDA-Public Use
  Company Number: None

PATIENT
  Age: 78 Year
  Sex: Male
  Weight: 80.6 kg

DRUGS (3)
  1. NORMAL SALINE 0.9% INTRAVENOUS INFUSION 1000 ML [Concomitant]
     Dates: start: 20210127, end: 20210127
  2. AZITHROMYCIN 500 MG ORAL TABLET [Concomitant]
     Dates: start: 20210127, end: 20210127
  3. BAMLANIVIMAB. [Suspect]
     Active Substance: BAMLANIVIMAB
     Indication: COVID-19
     Dosage: ?          OTHER FREQUENCY:ONCE;?
     Route: 040
     Dates: start: 20210127, end: 20210127

REACTIONS (6)
  - Chills [None]
  - Wheezing [None]
  - Tremor [None]
  - Tachycardia [None]
  - Hypersensitivity [None]
  - Infusion related reaction [None]

NARRATIVE: CASE EVENT DATE: 20210127
